FAERS Safety Report 5420939-8 (Version None)
Quarter: 2007Q3

REPORT INFORMATION
  Report Type: 
  Country: None (occurrence: None)
  Receive Date: 20070817
  Receipt Date: 20070817
  Transmission Date: 20080115
  Serious: No
  Sender: FDA-Public Use
  Company Number: None

PATIENT
  Age: 58 Year
  Sex: Female
  Weight: 90.7194 kg

DRUGS (2)
  1. ESTRATEST H.S. [Suspect]
     Indication: AFFECT LABILITY
     Dosage: 1 TAB DAILY PO
     Route: 048
     Dates: start: 20070801, end: 20070811
  2. ESTRATEST H.S. [Suspect]
     Indication: HOT FLUSH
     Dosage: 1 TAB DAILY PO
     Route: 048
     Dates: start: 20070801, end: 20070811

REACTIONS (2)
  - VAGINAL INFECTION [None]
  - VULVITIS [None]
